FAERS Safety Report 9027043 (Version 2)
Quarter: 2013Q1

REPORT INFORMATION
  Report Type: Spontaneous
  Country: US (occurrence: US)
  Receive Date: 20130123
  Receipt Date: 20130301
  Transmission Date: 20140127
  Serious: Yes (Death, Hospitalization)
  Sender: FDA-Public Use
  Company Number: US-B.I. PHARMACEUTICALS,INC./RIDGEFIELD-2013-BI-01752BP

PATIENT
  Age: 7 Decade
  Sex: Female

DRUGS (7)
  1. PRADAXA [Suspect]
     Indication: CEREBROVASCULAR ACCIDENT PROPHYLAXIS
     Route: 048
  2. PRADAXA [Suspect]
     Indication: ATRIAL FIBRILLATION
  3. INSULIN [Concomitant]
  4. BLOOD PRESSURE MEDICATION [Concomitant]
  5. TOPICAL TREATMENT FOR PSORIASIS [Concomitant]
     Route: 061
  6. NEBULIZER [Concomitant]
  7. STATIN [Concomitant]

REACTIONS (1)
  - Gastrointestinal haemorrhage [Fatal]
